FAERS Safety Report 5550347-0 (Version None)
Quarter: 2007Q4

REPORT INFORMATION
  Report Type: 
  Country: None (occurrence: None)
  Receive Date: 20071210
  Receipt Date: 20071123
  Transmission Date: 20080405
  Serious: Yes (Hospitalization, Other)
  Sender: FDA-Public Use
  Company Number: S07-GER-00142-01

PATIENT
  Age: 26 Year
  Sex: Female
  Weight: 120 kg

DRUGS (10)
  1. ESCITALOPRAM [Suspect]
     Indication: DEPRESSION
     Dosage: 10 MG QD PO
     Route: 048
     Dates: end: 20070414
  2. ESCITALOPRAM [Suspect]
     Indication: DEPRESSION
     Dosage: 20 MG QD PO
     Route: 048
     Dates: end: 20071001
  3. ESCITALOPRAM [Suspect]
     Indication: DEPRESSION
     Dates: start: 20060101
  4. ESCITALOPRAM [Suspect]
     Indication: DEPRESSION
     Dosage: 20 MG QD PO
     Route: 048
  5. IRON [Concomitant]
  6. FOLIC ACID [Concomitant]
  7. MINERALS NOS [Concomitant]
  8. JOD (IODINE) [Concomitant]
  9. ENOXAPARIN SODIUM [Concomitant]
  10. MAGNO SANOL (MAGNESIUM) [Concomitant]

REACTIONS (5)
  - CAESAREAN SECTION [None]
  - DRUG EXPOSURE DURING PREGNANCY [None]
  - PREGNANCY [None]
  - SCIATICA [None]
  - SYMPHYSIOLYSIS [None]
